FAERS Safety Report 4404784-8 (Version None)
Quarter: 2004Q3

REPORT INFORMATION
  Report Type: 
  Country: None (occurrence: None)
  Receive Date: 20040722
  Receipt Date: 20040714
  Transmission Date: 20050211
  Serious: Yes (Other)
  Sender: FDA-Public Use
  Company Number: PHNU2004PL02516

PATIENT
  Age: 57 Year
  Sex: Male
  Weight: 97 kg

DRUGS (9)
  1. LOCOL [Suspect]
     Indication: HYPERCHOLESTEROLAEMIA
     Dosage: 40 MG, QD
     Route: 048
     Dates: start: 20040629, end: 20040714
  2. ZOCOR [Concomitant]
  3. LOTENSIN [Concomitant]
  4. LOTENSIN [Concomitant]
  5. NORVASC [Concomitant]
  6. CONCOR [Concomitant]
  7. CIANOLIT [Concomitant]
  8. PROCRANOLOL [Concomitant]
  9. AMLOZEC [Concomitant]

REACTIONS (4)
  - CHROMATURIA [None]
  - EYELID OEDEMA [None]
  - FACE OEDEMA [None]
  - HERPES SIMPLEX [None]
